FAERS Safety Report 4656997-8 (Version None)
Quarter: 2005Q2

REPORT INFORMATION
  Report Type: 
  Country: None (occurrence: None)
  Receive Date: 20050509
  Receipt Date: 20041105
  Transmission Date: 20051028
  Serious: Yes (Hospitalization)
  Sender: FDA-Public Use
  Company Number: US-MERCK-0411USA01121

PATIENT
  Age: 45 Year
  Sex: Female
  Weight: 91 kg

DRUGS (4)
  1. VIOXX [Suspect]
     Indication: OSTEOARTHRITIS
     Route: 048
     Dates: start: 20010801, end: 20021001
  2. ATENOLOL [Concomitant]
     Route: 065
  3. NORVASC [Concomitant]
     Route: 065
     Dates: start: 20020101
  4. ZESTRIL [Concomitant]
     Route: 065

REACTIONS (12)
  - ACUTE MYOCARDIAL INFARCTION [None]
  - ANXIETY [None]
  - BLOOD GLUCOSE INCREASED [None]
  - CORONARY ARTERY DISEASE [None]
  - CORONARY ARTERY RESTENOSIS [None]
  - CORONARY OSTIAL STENOSIS [None]
  - HIGH DENSITY LIPOPROTEIN DECREASED [None]
  - HYPERTENSION [None]
  - HYPOAESTHESIA [None]
  - SINUS BRADYCARDIA [None]
  - STENT OCCLUSION [None]
  - SWELLING [None]
